FAERS Safety Report 25399242 (Version 1)
Quarter: 2025Q2

REPORT INFORMATION
  Report Type: Spontaneous
  Country: GR (occurrence: GR)
  Receive Date: 20250605
  Receipt Date: 20250605
  Transmission Date: 20250717
  Serious: Yes (Death, Hospitalization, Other)
  Sender: RECORDATI
  Company Number: GR-ORPHANEU-2025003859

PATIENT
  Age: 55 Year
  Sex: Female

DRUGS (7)
  1. OSILODROSTAT [Suspect]
     Active Substance: OSILODROSTAT
     Indication: Adrenocortical carcinoma
     Dates: start: 20250328, end: 2025
  2. OSILODROSTAT [Suspect]
     Active Substance: OSILODROSTAT
     Dates: start: 20250411, end: 20250421
  3. OSILODROSTAT [Suspect]
     Active Substance: OSILODROSTAT
     Dates: start: 20250422, end: 202504
  4. OSILODROSTAT [Suspect]
     Active Substance: OSILODROSTAT
     Dates: start: 20250423, end: 202504
  5. OSILODROSTAT [Suspect]
     Active Substance: OSILODROSTAT
     Dates: start: 20250425, end: 202504
  6. OSILODROSTAT [Suspect]
     Active Substance: OSILODROSTAT
     Dates: start: 20250430
  7. CABOZANTINIB [Suspect]
     Active Substance: CABOZANTINIB
     Indication: Adrenocortical carcinoma
     Dates: start: 202501

REACTIONS (7)
  - Death [Fatal]
  - Blood glucose increased [Recovering/Resolving]
  - Vena cava thrombosis [Not Recovered/Not Resolved]
  - Cerebral haemorrhage [Unknown]
  - Hypertension [Not Recovered/Not Resolved]
  - Generalised oedema [Recovering/Resolving]
  - Off label use [Recovered/Resolved]

NARRATIVE: CASE EVENT DATE: 20250401
